FAERS Safety Report 10336643 (Version 2)
Quarter: 2014Q3

REPORT INFORMATION
  Report Type: Spontaneous
  Country: US (occurrence: US)
  Receive Date: 20140723
  Receipt Date: 20140723
  Transmission Date: 20150326
  Serious: No
  Sender: FDA-Public Use
  Company Number: US-UNITED THERAPEUTICS-UTC-047220

PATIENT
  Sex: Male
  Weight: 94.33 kg

DRUGS (3)
  1. TYVASO [Suspect]
     Active Substance: TREPROSTINIL
     Dosage: 18-54 MICROGRAMS,QID
     Dates: start: 20140331, end: 20140414
  2. WARFARIN [Concomitant]
     Active Substance: WARFARIN
  3. ADCIRCA [Concomitant]
     Active Substance: TADALAFIL

REACTIONS (8)
  - Insomnia [Unknown]
  - Diarrhoea [Unknown]
  - Dyspnoea [Unknown]
  - Drug ineffective [Unknown]
  - Cough [Unknown]
  - Abdominal discomfort [Unknown]
  - Malaise [Unknown]
  - Exercise tolerance decreased [Unknown]
